FAERS Safety Report 6151291-0 (Version None)
Quarter: 2009Q2

REPORT INFORMATION
  Report Type: 
  Country: None (occurrence: None)
  Receive Date: 20090410
  Receipt Date: 20090403
  Transmission Date: 20091009
  Serious: Yes (Hospitalization, Other)
  Sender: FDA-Public Use
  Company Number: GB-ASTRAZENECA-2009GB00824

PATIENT
  Age: 78 Year
  Sex: Female
  Weight: 77 kg

DRUGS (12)
  1. OMEPRAZOLE [Suspect]
     Indication: PROPHYLAXIS AGAINST GASTROINTESTINAL ULCER
     Dosage: 20 MG
     Route: 048
     Dates: start: 19990101, end: 20090220
  2. ASPIRIN [Concomitant]
  3. CALCICHEW [Concomitant]
  4. FERROUS SULFATE TAB [Concomitant]
  5. ISOSORBIDE MONONITRATE [Concomitant]
  6. SIMVASTATIN [Concomitant]
  7. SPIRIVA [Concomitant]
     Route: 055
  8. SYMBICORT [Concomitant]
     Route: 055
  9. THEOPHYLLINE [Concomitant]
  10. CALCIUM [Concomitant]
     Route: 048
  11. MAGNESIUM SULFATE [Concomitant]
     Route: 048
  12. VITAMIN D [Concomitant]

REACTIONS (7)
  - CHRONIC OBSTRUCTIVE PULMONARY DISEASE [None]
  - COUGH [None]
  - DIARRHOEA [None]
  - DYSPNOEA [None]
  - HYPOCALCAEMIA [None]
  - HYPOKALAEMIA [None]
  - HYPOMAGNESAEMIA [None]
